FAERS Safety Report 5768634-X (Version None)
Quarter: 2008Q2

REPORT INFORMATION
  Report Type: 
  Country: None (occurrence: None)
  Receive Date: 20080612
  Receipt Date: 20080306
  Transmission Date: 20081010
  Serious: No
  Sender: FDA-Public Use
  Company Number: US-ABBOTT-08P-163-0441732-00

PATIENT
  Sex: Female
  Weight: 47.216 kg

DRUGS (3)
  1. HUMIRA [Suspect]
     Indication: RHEUMATOID ARTHRITIS
     Route: 058
     Dates: start: 20070901
  2. HYDROCELL [Suspect]
     Indication: ARTHROPATHY
  3. PARACTIN [Suspect]
     Indication: ARTHROPATHY

REACTIONS (5)
  - DIARRHOEA [None]
  - INFLAMMATION [None]
  - NODULE [None]
  - PAIN [None]
  - WEIGHT INCREASED [None]
